FAERS Safety Report 13166843 (Version 4)
Quarter: 2018Q1

REPORT INFORMATION
  Report Type: Spontaneous
  Country: RU (occurrence: RU)
  Receive Date: 20170131
  Receipt Date: 20180105
  Transmission Date: 20180508
  Serious: Yes (Hospitalization)
  Sender: FDA-Public Use
  Company Number: RU-ASTRAZENECA-2017SE09898

PATIENT
  Age: 47 Year
  Sex: Female
  Weight: 53 kg

DRUGS (5)
  1. BETALOC ZOK [Concomitant]
     Active Substance: METOPROLOL SUCCINATE
  2. THROMBO ASS [Concomitant]
     Active Substance: ASPIRIN
  3. TOFISOPAM [Concomitant]
     Active Substance: TOFISOPAM
  4. BRILINTA [Suspect]
     Active Substance: TICAGRELOR
     Indication: MYOCARDIAL INFARCTION
     Route: 048
     Dates: start: 201610
  5. ROZUCARD [Concomitant]

REACTIONS (6)
  - Intentional product use issue [Unknown]
  - Chest pain [Not Recovered/Not Resolved]
  - Myocardial infarction [Unknown]
  - Off label use [Unknown]
  - Vascular stent occlusion [Recovered/Resolved]
  - Blood pressure decreased [Not Recovered/Not Resolved]

NARRATIVE: CASE EVENT DATE: 201610
